FAERS Safety Report 19674309 (Version 2)
Quarter: 2021Q3

REPORT INFORMATION
  Report Type: Report from Study
  Country: IT (occurrence: IT)
  Receive Date: 20210809
  Receipt Date: 20210816
  Transmission Date: 20211014
  Serious: Yes (Other)
  Sender: FDA-Public Use
  Company Number: IT-CELLTRION INC.-2021IT010345

PATIENT

DRUGS (30)
  1. NETUPITANT;PALONOSETRON [Suspect]
     Active Substance: NETUPITANT\PALONOSETRON HYDROCHLORIDE
     Indication: BREAST CANCER
     Dosage: 300.5 MILLIGRAM EVERY 3 WEEKS
     Route: 042
     Dates: start: 20181128, end: 20190130
  2. TRASTUZUMAB (UNKNOWN) [Suspect]
     Active Substance: TRASTUZUMAB
     Dosage: 480 MILLIGRAM EVERY 3 WEEKS
     Route: 042
     Dates: start: 20200609, end: 20201118
  3. PREDNISONE. [Concomitant]
     Active Substance: PREDNISONE
  4. CHLORPHENAMINE MALEATE [Concomitant]
     Active Substance: CHLORPHENIRAMINE MALEATE
  5. DEXAMETHASONE PHOSPHATE [Concomitant]
     Active Substance: DEXAMETHASONE PHOSPHATE
  6. LORATADINA [Concomitant]
     Active Substance: LORATADINE
     Dosage: ONGOING = CHECKED
     Dates: start: 20190816
  7. METOCLOPRAMIDE. [Concomitant]
     Active Substance: METOCLOPRAMIDE
     Dosage: ONGOING = CHECKED
     Dates: start: 20200401
  8. ESOMEPRAZOLE. [Concomitant]
     Active Substance: ESOMEPRAZOLE MAGNESIUM
     Dosage: UNK
     Dates: start: 20200920
  9. EPIRUBICIN [Suspect]
     Active Substance: EPIRUBICIN
     Indication: BREAST CANCER
     Dosage: 130 MILLIGRAM EVERY 3 WEEKS
     Route: 042
     Dates: start: 20181128, end: 20190130
  10. TRASTUZUMAB (UNKNOWN) [Suspect]
     Active Substance: TRASTUZUMAB
     Indication: BREAST CANCER
     Dosage: 816 MILLIGRAM EVERY 3 WEEKS, ON 27/SEP/2017, RECEIVED MOST RECENT DOSE PRIOR TO THE EVENT.
     Route: 041
     Dates: start: 20170424, end: 20170424
  11. PERTUZUMAB. [Suspect]
     Active Substance: PERTUZUMAB
     Indication: BREAST CANCER
     Dosage: 840 MILLIGRAM, ON 24/MAY/2017, RECEIVED MOST RECENT DOSE PRIOR TO THE EVENT.
     Route: 042
     Dates: start: 20170424, end: 20170424
  12. VINORELBINE [Suspect]
     Active Substance: VINORELBINE TARTRATE
     Indication: BREAST CANCER
     Dosage: 50 MILLIGRAM,ON 02/MAY/2019 RECEIVED MOST RECENT DOSE PRIOR TO THE EVENT.
     Route: 042
     Dates: start: 20190307, end: 20190404
  13. DOCETAXEL. [Suspect]
     Active Substance: DOCETAXEL
     Indication: BREAST CANCER
     Dosage: 150 MILLIGRAM EVERY 3 WEEKS
     Route: 042
     Dates: start: 20170424, end: 20170818
  14. CAPECITABINE. [Suspect]
     Active Substance: CAPECITABINE
     Indication: BREAST CANCER
     Dosage: 4000 MILLIGRAM, QD
     Route: 048
     Dates: start: 20180521, end: 20180904
  15. ERIBULIN MESYLATE [Suspect]
     Active Substance: ERIBULIN MESYLATE
     Indication: BREAST CANCER
     Dosage: 2 MILLIGRAM
     Route: 042
     Dates: start: 20201127
  16. TRASTUZUMAB EMTANSINE [Suspect]
     Active Substance: ADO-TRASTUZUMAB EMTANSINE
     Indication: BREAST CANCER
     Dosage: 75 MILLIGRAM EVERY 3 WEEKS, 26/SEP/2018 RECEIVED MOST RECENT DOSE PRIOR TO THE EVENT
     Route: 058
     Dates: start: 20180905, end: 20180905
  17. CYCLOPHOSPHAMIDE. [Suspect]
     Active Substance: CYCLOPHOSPHAMIDE
     Indication: BREAST CANCER
     Dosage: 130 MILLIGRAM EVERY 3 WEEKS, 30/JAN/2019, SHE RECEIVED MOST RECENT DOSE OF CYCLOPHOSPHAMIDE
     Route: 042
     Dates: start: 20181128
  18. VENLAFAXINA [VENLAFAXINE] [Concomitant]
     Active Substance: VENLAFAXINE HYDROCHLORIDE
     Dosage: ONGOING = CHECKED
  19. DELTACORTENE [Concomitant]
     Active Substance: PREDNISONE
     Dosage: ONGOING = CHECKED
     Dates: start: 20200722
  20. LUCEN [Concomitant]
     Active Substance: ESOMEPRAZOLE
     Dosage: ONGOING = CHECKED
     Dates: start: 20200129
  21. RAMIPRIL. [Concomitant]
     Active Substance: RAMIPRIL
     Dosage: ONGOING = CHECKED
     Dates: start: 20190909
  22. TRASTUZUMAB (UNKNOWN) [Suspect]
     Active Substance: TRASTUZUMAB
     Dosage: 840 MILLIGRAM EVERY 3 WEEKS, ON 09/JUN/2020 RECEIVED MOST RECENT DOSE PRIOR TO THE EVENT
     Route: 042
     Dates: start: 20190307, end: 20190307
  23. TRASTUZUMAB (UNKNOWN) [Suspect]
     Active Substance: TRASTUZUMAB
     Dosage: 30 MILLIGRAM EVERY 3 WEEKS
     Route: 042
     Dates: start: 20190404, end: 20200422
  24. PALONOSETRON. [Concomitant]
     Active Substance: PALONOSETRON HYDROCHLORIDE
  25. METHOTREXATE. [Suspect]
     Active Substance: METHOTREXATE
     Indication: BREAST CANCER
     Dosage: 5 MILLIGRAM, ON 11/DEC/2019 RECEIVED MOST RECENT DOSE PRIOR TO THE EVENT.
     Route: 048
     Dates: start: 20191030, end: 20191127
  26. LAPATINIB [Suspect]
     Active Substance: LAPATINIB
     Indication: BREAST CANCER
     Dosage: 1250 MILLIGRAM, QD
     Route: 048
     Dates: start: 20180511, end: 20180904
  27. CARBOPLATIN. [Suspect]
     Active Substance: CARBOPLATIN
     Indication: BREAST CANCER
     Dosage: 600 MILLIGRAM EVERY 3 WEEKS, ON 28/JUL/2020 RECEIVED MOST RECENT DOSE PRIOR TO THE EVENT.
     Route: 042
     Dates: start: 20200422, end: 20200422
  28. CYCLOPHOSPHAMIDE. [Suspect]
     Active Substance: CYCLOPHOSPHAMIDE
     Dosage: 50 MILLIGRAM PER 0.5 DAY
     Route: 042
     Dates: start: 20191030
  29. RANITIDINE. [Concomitant]
     Active Substance: RANITIDINE
  30. GRANISETRON [Concomitant]
     Active Substance: GRANISETRON

REACTIONS (4)
  - Neutropenia [Recovering/Resolving]
  - Neutropenia [Recovered/Resolved]
  - Overdose [Unknown]
  - Underdose [Unknown]

NARRATIVE: CASE EVENT DATE: 20190327
